APPROVED DRUG PRODUCT: BYETTA
Active Ingredient: EXENATIDE SYNTHETIC
Strength: 300MCG/1.2ML (250MCG/ML)
Dosage Form/Route: INJECTABLE;SUBCUTANEOUS
Application: N021773 | Product #001
Applicant: ASTRAZENECA AB
Approved: Apr 28, 2005 | RLD: Yes | RS: No | Type: DISCN